FAERS Safety Report 20810740 (Version 7)
Quarter: 2022Q4

REPORT INFORMATION
  Report Type: Report from Study
  Country: CA (occurrence: CA)
  Receive Date: 20220510
  Receipt Date: 20221006
  Transmission Date: 20230113
  Serious: Yes (Other)
  Sender: FDA-Public Use
  Company Number: CA-BIOGEN-2022BI01117369

PATIENT
  Age: 39 Year
  Sex: Female

DRUGS (6)
  1. TYSABRI [Suspect]
     Active Substance: NATALIZUMAB
     Indication: Multiple sclerosis
     Route: 050
     Dates: start: 20120516
  2. TYSABRI [Suspect]
     Active Substance: NATALIZUMAB
     Route: 050
  3. TYSABRI [Suspect]
     Active Substance: NATALIZUMAB
     Route: 050
     Dates: start: 20120516
  4. TYSABRI [Suspect]
     Active Substance: NATALIZUMAB
     Route: 050
     Dates: start: 20120516
  5. TYSABRI [Suspect]
     Active Substance: NATALIZUMAB
     Route: 050
  6. TYLENOL [Suspect]
     Active Substance: ACETAMINOPHEN
     Indication: Product used for unknown indication
     Route: 050

REACTIONS (22)
  - Viraemia [Unknown]
  - Cytomegalovirus infection [Unknown]
  - Alanine aminotransferase increased [Not Recovered/Not Resolved]
  - Prescribed underdose [Unknown]
  - Anxiety [Unknown]
  - Optic neuritis [Recovered/Resolved]
  - Migraine [Unknown]
  - Body temperature increased [Recovered/Resolved]
  - Blood iron decreased [Unknown]
  - White blood cell count abnormal [Not Recovered/Not Resolved]
  - Hypotension [Not Recovered/Not Resolved]
  - Pyrexia [Unknown]
  - Gait disturbance [Not Recovered/Not Resolved]
  - Abscess limb [Not Recovered/Not Resolved]
  - Folliculitis [Not Recovered/Not Resolved]
  - Procedural pain [Unknown]
  - Cyst [Not Recovered/Not Resolved]
  - Overdose [Unknown]
  - Headache [Unknown]
  - Dizziness [Unknown]
  - Herpes zoster [Not Recovered/Not Resolved]
  - Fatigue [Not Recovered/Not Resolved]

NARRATIVE: CASE EVENT DATE: 20220330
